FAERS Safety Report 21528558 (Version 1)
Quarter: 2022Q4

REPORT INFORMATION
  Report Type: Spontaneous
  Country: US (occurrence: US)
  Receive Date: 20221031
  Receipt Date: 20221031
  Transmission Date: 20230112
  Serious: Yes (Other)
  Sender: FDA-Public Use
  Company Number: US-Accord-283906

PATIENT
  Age: 69 Year
  Sex: Female
  Weight: 104.08 kg

DRUGS (21)
  1. EPLERENONE [Suspect]
     Active Substance: EPLERENONE
     Indication: Product used for unknown indication
     Dates: start: 202209
  2. SPIRONOLACTONE [Suspect]
     Active Substance: SPIRONOLACTONE
     Indication: Product used for unknown indication
     Dates: end: 20220814
  3. MIFEPRISTONE [Suspect]
     Active Substance: MIFEPRISTONE
     Indication: Cushing^s syndrome
     Dosage: QD
     Dates: start: 20220817, end: 20220830
  4. ACARBOSE [Concomitant]
     Active Substance: ACARBOSE
  5. ACTOS [Concomitant]
     Active Substance: PIOGLITAZONE HYDROCHLORIDE
  6. ANASTROZOLE [Concomitant]
     Active Substance: ANASTROZOLE
  7. ASPIRIN [Concomitant]
     Active Substance: ASPIRIN
  8. BENZONATATE [Concomitant]
     Active Substance: BENZONATATE
  9. GEMFIBROZIL [Concomitant]
     Active Substance: GEMFIBROZIL
  10. HYDROCHLOROTHIAZIDE [Concomitant]
     Active Substance: HYDROCHLOROTHIAZIDE
  11. METFORMIN [Concomitant]
     Active Substance: METFORMIN HYDROCHLORIDE
  12. OMEPRAZOLE [Concomitant]
     Active Substance: OMEPRAZOLE
  13. OXYBUTYNIN [Concomitant]
     Active Substance: OXYBUTYNIN
  14. HERBALS\TURMERIC [Concomitant]
     Active Substance: HERBALS\TURMERIC
  15. VITAMIN B [Concomitant]
     Active Substance: VITAMIN B
  16. ASCORBIC ACID [Concomitant]
     Active Substance: ASCORBIC ACID
  17. VITAMIN D NOS [Concomitant]
     Active Substance: VITAMIN D NOS
  18. ZETIA [Concomitant]
     Active Substance: EZETIMIBE
  19. ZINC [Concomitant]
     Active Substance: ZINC
  20. MIFEPRISTONE [Suspect]
     Active Substance: MIFEPRISTONE
     Indication: Cushing^s syndrome
     Dosage: QD
     Route: 048
     Dates: start: 20220831
  21. SPIRONOLACTONE [Suspect]
     Active Substance: SPIRONOLACTONE
     Indication: Product used for unknown indication
     Dates: start: 20220815

REACTIONS (17)
  - Staphylococcal infection [Unknown]
  - Blister [Unknown]
  - Drug hypersensitivity [Unknown]
  - Blood glucose increased [Unknown]
  - Feeling of body temperature change [Unknown]
  - Glycosylated haemoglobin increased [Not Recovered/Not Resolved]
  - Rash erythematous [Unknown]
  - Joint swelling [Unknown]
  - Pain [Recovered/Resolved]
  - Pruritus [Not Recovered/Not Resolved]
  - Pain in extremity [Unknown]
  - Headache [Unknown]
  - Somnolence [Not Recovered/Not Resolved]
  - Blood corticotrophin increased [Not Recovered/Not Resolved]
  - Fatigue [Not Recovered/Not Resolved]
  - Oedema peripheral [Unknown]
  - Arthralgia [Unknown]

NARRATIVE: CASE EVENT DATE: 20220101
